FAERS Safety Report 7899165-9 (Version None)
Quarter: 2011Q4

REPORT INFORMATION
  Report Type: 
  Country: None (occurrence: None)
  Receive Date: 20111107
  Receipt Date: 20110916
  Transmission Date: 20120403
  Serious: No
  Sender: FDA-Public Use
  Company Number: US-AMGEN-USASP2011033484

PATIENT
  Age: 68 Year
  Sex: Female

DRUGS (4)
  1. ENBREL [Suspect]
     Indication: PSORIATIC ARTHROPATHY
     Dosage: 25 MG, 2 TIMES/WK
     Route: 058
     Dates: start: 20110421, end: 20110629
  2. ENBREL [Suspect]
     Indication: PSORIASIS
  3. METHOTREXATE [Concomitant]
     Dosage: UNK
     Dates: start: 20101227, end: 20110629
  4. FOLIC ACID [Concomitant]
     Dosage: UNK
     Dates: start: 20101227, end: 20110629

REACTIONS (6)
  - CHILLS [None]
  - ANXIETY [None]
  - NIGHT SWEATS [None]
  - HEART RATE INCREASED [None]
  - FEELING COLD [None]
  - DYSPNOEA [None]
